FAERS Safety Report 5942217-0 (Version None)
Quarter: 2008Q4

REPORT INFORMATION
  Report Type: 
  Country: None (occurrence: None)
  Receive Date: 20081105
  Receipt Date: 20081028
  Transmission Date: 20090506
  Serious: Yes (Other)
  Sender: FDA-Public Use
  Company Number: RU-ROCHE-594609

PATIENT
  Age: 45 Year
  Sex: Female

DRUGS (6)
  1. XELODA [Suspect]
     Indication: COLORECTAL CANCER
     Dosage: FREQUENCY REPORTED : 14 DAYS
     Route: 048
     Dates: start: 20080101
  2. AVASTIN [Suspect]
     Indication: COLORECTAL CANCER
     Route: 042
     Dates: start: 20081010
  3. OXALIPLATIN [Concomitant]
     Indication: COLORECTAL CANCER
     Dosage: FREQUENCY REPORTED:  PER WEEK
     Dates: start: 20080101
  4. FLUOROURACIL [Concomitant]
  5. LEUCOVORIN CALCIUM [Concomitant]
     Dosage: LEUCOVORINE
  6. IRINOTECAN HYDROCHLORIDE [Concomitant]

REACTIONS (3)
  - COAGULATION TIME PROLONGED [None]
  - NEOPLASM RECURRENCE [None]
  - RECTAL HAEMORRHAGE [None]
